FAERS Safety Report 8986601 (Version 1)
Quarter: 2012Q4

REPORT INFORMATION
  Report Type: 
  Country: US (occurrence: US)
  Receive Date: 20121227
  Receipt Date: 20121227
  Transmission Date: 20130627
  Serious: Yes (Other)
  Sender: FDA-Public Use
  Company Number: US-ELI_LILLY_AND_COMPANY-US201212005993

PATIENT
  Age: 66 None
  Sex: Female

DRUGS (14)
  1. FORTEO [Suspect]
     Indication: OSTEOPOROSIS
     Dosage: UNK
     Dates: end: 2010
  2. FORTEO [Suspect]
     Dosage: 20 ug, qd
     Dates: start: 20120412, end: 201211
  3. MECLIZINE HCL [Concomitant]
  4. ATENOLOL [Concomitant]
  5. AMLODIPINE [Concomitant]
  6. LOSARTAN [Concomitant]
  7. POTASSIUM [Concomitant]
  8. MONTELUKAST SODIUM [Concomitant]
  9. MAGNESIUM [Concomitant]
  10. CALCIUM [Concomitant]
  11. LORTAB [Concomitant]
  12. OMEPRAZOLE [Concomitant]
  13. LORAZEPAM [Concomitant]
  14. PROZAC [Concomitant]

REACTIONS (7)
  - Renal cancer [Unknown]
  - Tooth disorder [Unknown]
  - Fall [Unknown]
  - Wrist fracture [Unknown]
  - Gallbladder disorder [Unknown]
  - Hiatus hernia [Unknown]
  - Vertigo [Recovered/Resolved]
